FAERS Safety Report 11877582 (Version 1)
Quarter: 2015Q4

REPORT INFORMATION
  Report Type: Spontaneous
  Country: IR (occurrence: IR)
  Receive Date: 20151230
  Receipt Date: 20151230
  Transmission Date: 20160305
  Serious: Yes (Other)
  Sender: FDA-Public Use
  Company Number: IR-MYLANLABS-2015M1047342

PATIENT

DRUGS (3)
  1. IFOSFAMIDE. [Suspect]
     Active Substance: IFOSFAMIDE
     Indication: ACUTE LYMPHOCYTIC LEUKAEMIA
     Dosage: 3 G/M2/D
     Route: 065
  2. METHYLTHIONINIUM CHLORIDE [Suspect]
     Active Substance: METHYLENE BLUE
     Indication: ENCEPHALOPATHY
     Dosage: 30MG OVER A 5MIN PERIOD
     Route: 041
  3. ETOPOSIDE. [Concomitant]
     Active Substance: ETOPOSIDE
     Indication: ACUTE LYMPHOCYTIC LEUKAEMIA
     Dosage: 100 MG/M2/D
     Route: 065

REACTIONS (2)
  - Chromaturia [Unknown]
  - Toxic encephalopathy [Recovered/Resolved]
